FAERS Safety Report 8061356 (Version 14)
Quarter: 2013Q4

REPORT INFORMATION
  Report Type: Spontaneous
  Country: US (occurrence: US)
  Receive Date: 20110729
  Receipt Date: 20131206
  Transmission Date: 20140711
  Serious: Yes (Disabling, Other)
  Sender: FDA-Public Use
  Company Number: US-009507513-1107USA03585

PATIENT
  Sex: Female
  Weight: 44 kg

DRUGS (6)
  1. FOSAMAX [Suspect]
     Indication: OSTEOPENIA
     Dosage: 70 MG, QW
     Route: 048
     Dates: start: 20080428, end: 20081128
  2. FOSAMAX [Suspect]
     Indication: OSTEOPOROSIS
  3. FOSAMAX PLUS D [Suspect]
     Indication: OSTEOPENIA
     Dosage: 70 MG/2800 IU, QW
     Route: 048
     Dates: start: 20080424, end: 20080927
  4. FOSAMAX PLUS D [Suspect]
     Indication: OSTEOPOROSIS
  5. FOSAMAX [Suspect]
     Indication: OSTEOPENIA
     Dosage: 70 MG, QW
     Route: 048
     Dates: start: 20090106, end: 20100527
  6. ALENDRONATE SODIUM [Suspect]
     Indication: OSTEOPENIA
     Dosage: 70 MG, UNK
     Route: 048
     Dates: start: 20081128, end: 201010

REACTIONS (84)
  - Osteomyelitis [Unknown]
  - Cerebrovascular accident [Unknown]
  - Osteonecrosis of jaw [Not Recovered/Not Resolved]
  - Dental caries [Unknown]
  - Oral infection [Unknown]
  - Impaired healing [Unknown]
  - Gingival disorder [Unknown]
  - Gingival bleeding [Unknown]
  - Abscess [Unknown]
  - Abscess oral [Unknown]
  - Temporomandibular joint syndrome [Unknown]
  - Bone disorder [Unknown]
  - Tooth disorder [Unknown]
  - Tooth disorder [Not Recovered/Not Resolved]
  - Oral disorder [Unknown]
  - Periodontal disease [Unknown]
  - Fall [Unknown]
  - Chest pain [Not Recovered/Not Resolved]
  - Migraine [Unknown]
  - Weight decreased [Unknown]
  - Vascular calcification [Unknown]
  - Fatigue [Unknown]
  - Hypotension [Unknown]
  - Abscess oral [Unknown]
  - Oral cavity fistula [Unknown]
  - Hepatitis A [Unknown]
  - Bone disorder [Unknown]
  - Breath odour [Unknown]
  - Oral infection [Unknown]
  - Arthritis [Unknown]
  - Palpitations [Unknown]
  - Dyspnoea [Unknown]
  - Anxiety disorder [Unknown]
  - Periodontitis [Not Recovered/Not Resolved]
  - Paranasal cyst [Unknown]
  - Eye pain [Unknown]
  - Visual acuity reduced [Unknown]
  - Nasal septum deviation [Unknown]
  - Oral mucosal blistering [Recovered/Resolved]
  - White matter lesion [Unknown]
  - Vision blurred [Unknown]
  - Dental caries [Unknown]
  - Diplopia [Unknown]
  - Increased tendency to bruise [Unknown]
  - Ligament sprain [Unknown]
  - Cachexia [Unknown]
  - Osteoarthritis [Unknown]
  - Ligament laxity [Unknown]
  - Chills [Unknown]
  - Salivary hypersecretion [Unknown]
  - Skin mass [Unknown]
  - Peptic ulcer [Unknown]
  - Rotator cuff syndrome [Unknown]
  - Apathy [Unknown]
  - Pain [Unknown]
  - Eye pruritus [Unknown]
  - Tinnitus [Unknown]
  - Balance disorder [Unknown]
  - Sinusitis [Unknown]
  - Vision blurred [Not Recovered/Not Resolved]
  - Retinal disorder [Unknown]
  - Diplopia [Unknown]
  - Eye pain [Unknown]
  - Conjunctivitis [Unknown]
  - Patellofemoral pain syndrome [Unknown]
  - Bipolar II disorder [Unknown]
  - Irritable bowel syndrome [Unknown]
  - Drug intolerance [Unknown]
  - Loose tooth [Unknown]
  - Dizziness [Unknown]
  - Neck pain [Not Recovered/Not Resolved]
  - Back pain [Not Recovered/Not Resolved]
  - Back pain [Unknown]
  - Pain in extremity [Unknown]
  - Joint swelling [Unknown]
  - Muscle spasms [Unknown]
  - Arthralgia [Not Recovered/Not Resolved]
  - Nausea [Unknown]
  - Muscle spasms [Unknown]
  - Drug ineffective [Unknown]
  - Abdominal pain upper [Unknown]
  - Gastrooesophageal reflux disease [Unknown]
  - Diarrhoea [Recovering/Resolving]
  - Dizziness [Unknown]
